FAERS Safety Report 6833695-3 (Version None)
Quarter: 2010Q3

REPORT INFORMATION
  Report Type: 
  Country: None (occurrence: None)
  Receive Date: 20100712
  Receipt Date: 20070517
  Transmission Date: 20110219
  Serious: No
  Sender: FDA-Public Use
  Company Number: US-PFIZER INC-2007027238

PATIENT
  Sex: Male
  Weight: 88.45 kg

DRUGS (8)
  1. VARENICLINE [Suspect]
     Indication: SMOKING CESSATION THERAPY
     Dates: start: 20070327
  2. VALSARTAN [Concomitant]
  3. ADVAIR DISKUS 100/50 [Concomitant]
  4. ALBUTEROL [Concomitant]
  5. PRILOSEC [Concomitant]
  6. LIPITOR [Concomitant]
  7. TRICOR [Concomitant]
  8. PERPHENAZINE AND AMITRIPTYLINE HCL [Concomitant]

REACTIONS (5)
  - INSOMNIA [None]
  - NASOPHARYNGITIS [None]
  - PAIN [None]
  - PARAESTHESIA [None]
  - SENSORY DISTURBANCE [None]
